FAERS Safety Report 8110190-5 (Version None)
Quarter: 2012Q1

REPORT INFORMATION
  Report Type: 
  Country: None (occurrence: None)
  Receive Date: 20120202
  Receipt Date: 20120125
  Transmission Date: 20120608
  Serious: No
  Sender: FDA-Public Use
  Company Number: US-AMGEN-USASP2012005270

PATIENT
  Age: 86 Year
  Sex: Male

DRUGS (2)
  1. ENBREL [Suspect]
     Indication: RHEUMATOID ARTHRITIS
     Dosage: 50 MG, QWK
  2. HUMIRA [Concomitant]
     Dosage: UNK

REACTIONS (4)
  - WEIGHT DECREASED [None]
  - SKIN ATROPHY [None]
  - DRUG INEFFECTIVE [None]
  - INJECTION SITE REACTION [None]
